FAERS Safety Report 10521494 (Version 1)
Quarter: 2014Q4

REPORT INFORMATION
  Report Type: Spontaneous
  Country: US (occurrence: None)
  Receive Date: 20141003
  Receipt Date: 20141003
  Transmission Date: 20150528
  Serious: Yes (Other)
  Sender: FDA-Public Use
  Company Number: 515521

PATIENT
  Age: 50 Year
  Sex: Female

DRUGS (2)
  1. PEG-INTERFERON ALFA 2A [Suspect]
     Active Substance: PEGINTERFERON ALFA-2A
     Indication: CHRONIC HEPATITIS C
     Dosage: UNKNOWN
  2. RIBAVIRIN (RIBAVIRIN) [Concomitant]
     Active Substance: RIBAVIRIN

REACTIONS (1)
  - Endocrine ophthalmopathy [None]
